FAERS Safety Report 10621622 (Version 4)
Quarter: 2016Q4

REPORT INFORMATION
  Report Type: Other
  Country: TW (occurrence: TW)
  Receive Date: 20141203
  Receipt Date: 20161215
  Transmission Date: 20170206
  Serious: Yes (Death)
  Sender: FDA-Public Use
  Company Number: TW-UNITED THERAPEUTICS-UNT-2014-011541

PATIENT
  Age: 40 Year
  Sex: Male
  Weight: 75 kg

DRUGS (1)
  1. REMODULIN [Suspect]
     Active Substance: TREPROSTINIL
     Indication: PULMONARY ARTERIAL HYPERTENSION
     Dosage: 0.070 ?G/KG, QD
     Route: 058
     Dates: start: 20111108, end: 20141121

REACTIONS (1)
  - Death [Fatal]

NARRATIVE: CASE EVENT DATE: 20141121
